FAERS Safety Report 16927917 (Version 2)
Quarter: 2020Q1

REPORT INFORMATION
  Report Type: Report from Study
  Country: US (occurrence: US)
  Receive Date: 20191017
  Receipt Date: 20200130
  Transmission Date: 20200409
  Serious: Yes (Hospitalization)
  Sender: FDA-Public Use
  Company Number: US-ROCHE-2436100

PATIENT
  Age: 70 Year
  Sex: Male
  Weight: 104.6 kg

DRUGS (3)
  1. ONDANSETRON [Concomitant]
     Active Substance: ONDANSETRON
  2. OBINUTUZUMAB. [Suspect]
     Active Substance: OBINUTUZUMAB
     Indication: CHRONIC LYMPHOCYTIC LEUKAEMIA
     Dosage: 100 MG IV ON C1D1, 900 MG IV ON C1D2, 1000 MG IV ON C1D8 + C1D15, C2-6D1?ON 05/SEP/2019, HE RECEIVED
     Route: 042
     Dates: start: 20190822
  3. IBRUTINIB [Suspect]
     Active Substance: IBRUTINIB
     Indication: CHRONIC LYMPHOCYTIC LEUKAEMIA
     Dosage: FOR 15 CYCLES?ON 16/SEP/2019, HE RECEIVED LAST DOSE OF IBRUTINIB PRIOR TO ONSET OF SERIOUS ADVESRE E
     Route: 048
     Dates: start: 20190822, end: 20190916

REACTIONS (3)
  - Pneumatosis intestinalis [Recovered/Resolved]
  - Small intestinal obstruction [Unknown]
  - Atrial fibrillation [Recovered/Resolved]

NARRATIVE: CASE EVENT DATE: 20190916
